FAERS Safety Report 23931750 (Version 1)
Quarter: 2024Q2

REPORT INFORMATION
  Report Type: Spontaneous
  Country: US (occurrence: US)
  Receive Date: 20240603
  Receipt Date: 20240603
  Transmission Date: 20240716
  Serious: No
  Sender: FDA-Public Use
  Company Number: US-BRISTOL-MYERS SQUIBB COMPANY-2024-087877

PATIENT
  Age: 78 Year
  Sex: Female

DRUGS (3)
  1. ORENCIA [Suspect]
     Active Substance: ABATACEPT
     Indication: Rheumatoid arthritis
     Route: 042
     Dates: start: 2014
  2. ORENCIA [Suspect]
     Active Substance: ABATACEPT
     Indication: Psoriatic arthropathy
  3. COSENTYX [Concomitant]
     Active Substance: SECUKINUMAB
     Indication: Product used for unknown indication

REACTIONS (3)
  - Hypoacusis [Unknown]
  - Infection [Unknown]
  - Swelling [Unknown]
